FAERS Safety Report 8057679-5 (Version None)
Quarter: 2012Q1

REPORT INFORMATION
  Report Type: 
  Country: None (occurrence: None)
  Receive Date: 20120120
  Receipt Date: 20120110
  Transmission Date: 20120608
  Serious: No
  Sender: FDA-Public Use
  Company Number: US-BIOGENIDEC-2012BI001227

PATIENT
  Sex: Female

DRUGS (1)
  1. TYSABRI [Suspect]
     Indication: MULTIPLE SCLEROSIS
     Route: 042
     Dates: start: 20090915

REACTIONS (6)
  - BLINDNESS [None]
  - ABASIA [None]
  - FALL [None]
  - GAIT DISTURBANCE [None]
  - VISUAL IMPAIRMENT [None]
  - CENTRAL NERVOUS SYSTEM LESION [None]
